FAERS Safety Report 4915733-8 (Version None)
Quarter: 2006Q1

REPORT INFORMATION
  Report Type: 
  Country: None (occurrence: None)
  Receive Date: 20060217
  Receipt Date: 20060207
  Transmission Date: 20060701
  Serious: Yes (Other)
  Sender: FDA-Public Use
  Company Number: DE-JNJFOC-20060201852

PATIENT
  Age: 38 Year
  Sex: Female
  Weight: 55 kg

DRUGS (3)
  1. DURAGESIC-100 [Suspect]
     Indication: NEURALGIA
     Route: 062
  2. CELEBREX [Suspect]
     Indication: NEURALGIA
     Route: 065
  3. METAMIZOL [Suspect]
     Indication: NEURALGIA
     Route: 065

REACTIONS (4)
  - CARDIAC DISORDER [None]
  - COLONIC ATONY [None]
  - GASTROINTESTINAL DISORDER [None]
  - PAIN [None]
